FAERS Safety Report 21346589 (Version 10)
Quarter: 2023Q1

REPORT INFORMATION
  Report Type: Report from Study
  Country: CA (occurrence: CA)
  Receive Date: 20220917
  Receipt Date: 20230309
  Transmission Date: 20230417
  Serious: Yes (Other)
  Sender: FDA-Public Use
  Company Number: CA-NOVARTISPH-NVSC2022CA179193

PATIENT
  Age: 57 Year
  Sex: Female

DRUGS (12)
  1. HYRIMOZ [Suspect]
     Active Substance: ADALIMUMAB-ADAZ
     Indication: Crohn^s disease
     Dosage: 40 MG
     Route: 058
     Dates: start: 20220513
  2. HYRIMOZ [Suspect]
     Active Substance: ADALIMUMAB-ADAZ
     Dosage: UNK
     Route: 058
     Dates: start: 20221001
  3. HYRIMOZ [Suspect]
     Active Substance: ADALIMUMAB-ADAZ
     Dosage: 40 MG
     Route: 058
     Dates: start: 20221013
  4. HYRIMOZ [Suspect]
     Active Substance: ADALIMUMAB-ADAZ
     Dosage: UNK
     Route: 065
     Dates: start: 20221028
  5. HYRIMOZ [Suspect]
     Active Substance: ADALIMUMAB-ADAZ
     Dosage: 40 MG
     Route: 058
     Dates: start: 20221031
  6. HYRIMOZ [Suspect]
     Active Substance: ADALIMUMAB-ADAZ
     Dosage: 40 MG
     Route: 058
     Dates: start: 20221111
  7. MEDROL [Suspect]
     Active Substance: METHYLPREDNISOLONE
     Indication: Insomnia
     Dosage: UNK
     Route: 065
  8. NAPROXEN [Concomitant]
     Active Substance: NAPROXEN
     Indication: Product used for unknown indication
     Dosage: 500 MG
     Route: 065
  9. BEXSERO [Concomitant]
     Active Substance: NEISSERIA MENINGITIDIS GROUP B FHBP FUSION PROTEIN ANTIGEN\NEISSERIA MENINGITIDIS GROUP B NADA PROTE
     Indication: Product used for unknown indication
     Dosage: UNK
     Route: 065
  10. ALIGN [Concomitant]
     Active Substance: BIFIDOBACTERIUM LONGUM SUBSP. INFANTIS
     Indication: Prophylaxis
     Dosage: UNK
     Route: 065
  11. METHOTREXATE [Concomitant]
     Active Substance: METHOTREXATE
     Indication: Product used for unknown indication
     Dosage: 20 MG
     Route: 048
  12. FOLIC ACID [Concomitant]
     Active Substance: FOLIC ACID
     Indication: Product used for unknown indication
     Dosage: UNK
     Route: 065

REACTIONS (24)
  - Haematochezia [Not Recovered/Not Resolved]
  - Eye pruritus [Unknown]
  - Fatigue [Not Recovered/Not Resolved]
  - Diarrhoea [Not Recovered/Not Resolved]
  - Blood urine present [Unknown]
  - Arthralgia [Unknown]
  - White blood cell count increased [Unknown]
  - Feeling hot [Unknown]
  - Arthritis [Not Recovered/Not Resolved]
  - Burning sensation [Unknown]
  - Movement disorder [Unknown]
  - Oxygen saturation decreased [Unknown]
  - Inflammation [Unknown]
  - Alopecia [Unknown]
  - Headache [Unknown]
  - Abdominal pain upper [Unknown]
  - Pain in extremity [Unknown]
  - Migraine [Unknown]
  - Electric shock sensation [Unknown]
  - Synovitis [Unknown]
  - Hypoaesthesia [Unknown]
  - Pain [Unknown]
  - Insomnia [Recovering/Resolving]
  - Abdominal pain [Unknown]

NARRATIVE: CASE EVENT DATE: 20220828
